FAERS Safety Report 9500815 (Version 1)
Quarter: 2013Q1

REPORT INFORMATION
  Report Type: Spontaneous
  Country: US (occurrence: None)
  Receive Date: 20130107
  Receipt Date: 20130107
  Transmission Date: 20140127
  Serious: Yes (Other)
  Sender: FDA-Public Use
  Company Number: PHHY2012US075849

PATIENT
  Age: 53 Year
  Sex: Female

DRUGS (6)
  1. GILENYA (FTY) CAPSULE, 0.5MG [Suspect]
     Indication: MULTIPLE SCLEROSIS
     Route: 048
     Dates: start: 201110
  2. NORTRIPTYLINE (NORTRIPTYLINE) [Concomitant]
  3. ZYRTEC (CETRIINE HYDROCHLORIDE) [Concomitant]
  4. AMBIEN (ZOLPIDEM TARTRATE [Concomitant]
  5. CLONAZEPAM (CLONAZEPAM) (CLONAZEPAM) [Concomitant]
  6. CITALOPRAM HYDROBROMIDE (CTIALOPRAM HYDROBROMIDE) [Concomitant]

REACTIONS (1)
  - Depression [None]
